FAERS Safety Report 21797983 (Version 1)
Quarter: 2022Q4

REPORT INFORMATION
  Report Type: Spontaneous
  Country: RU (occurrence: RU)
  Receive Date: 20221230
  Receipt Date: 20221230
  Transmission Date: 20230113
  Serious: Yes (Life-Threatening, Other)
  Sender: FDA-Public Use
  Company Number: RU-JNJFOC-20221258676

PATIENT
  Sex: Female
  Weight: 63 kg

DRUGS (11)
  1. SIRTURO [Suspect]
     Active Substance: BEDAQUILINE FUMARATE
     Indication: Tuberculosis
     Dosage: DAILY DOSE: 0.2
     Route: 048
     Dates: start: 20220913, end: 20221226
  2. SIRTURO [Suspect]
     Active Substance: BEDAQUILINE FUMARATE
     Route: 048
     Dates: start: 20221226
  3. LEVOFLOXACIN [Suspect]
     Active Substance: LEVOFLOXACIN
     Indication: Tuberculosis
     Dosage: DAILY DOSE: 1.0
     Route: 048
     Dates: start: 20220913, end: 20221226
  4. LEVOFLOXACIN [Suspect]
     Active Substance: LEVOFLOXACIN
     Route: 048
     Dates: start: 20221226
  5. LINEZOLID [Suspect]
     Active Substance: LINEZOLID
     Indication: Tuberculosis
     Dosage: DAILY DOSE: 0.6
     Route: 048
     Dates: start: 20220913, end: 20221223
  6. LINEZOLID [Suspect]
     Active Substance: LINEZOLID
     Route: 048
     Dates: start: 20221223, end: 20221226
  7. LINEZOLID [Suspect]
     Active Substance: LINEZOLID
     Route: 048
     Dates: start: 20221226
  8. CLOFAZIMINE [Suspect]
     Active Substance: CLOFAZIMINE
     Indication: Tuberculosis
     Dosage: DAILY DOSE: 0.1
     Route: 048
     Dates: start: 20220913, end: 20221226
  9. CLOFAZIMINE [Suspect]
     Active Substance: CLOFAZIMINE
     Route: 048
     Dates: start: 20221226
  10. ENALAPRIL [Concomitant]
     Active Substance: ENALAPRIL
     Indication: Hypertension
     Route: 048
     Dates: start: 20220913
  11. OMEPRAZOLE [Concomitant]
     Active Substance: OMEPRAZOLE
     Indication: Ulcer
     Route: 048
     Dates: start: 20220913

REACTIONS (3)
  - Anaemia [Recovering/Resolving]
  - Nephropathy toxic [Not Recovered/Not Resolved]
  - Dysbiosis [Recovered/Resolved]

NARRATIVE: CASE EVENT DATE: 20220923
